FAERS Safety Report 5021197-9 (Version None)
Quarter: 2006Q2

REPORT INFORMATION
  Report Type: 
  Country: None (occurrence: None)
  Receive Date: 20060425
  Receipt Date: 20050524
  Transmission Date: 20061013
  Serious: Yes (Other)
  Sender: FDA-Public Use
  Company Number: WAES 0505USA03029

PATIENT
  Age: 8 Year
  Sex: Male

DRUGS (2)
  1. SINGULAIR [Suspect]
     Indication: WHEEZING
     Dosage: 5 MG DAILY PO
     Route: 048
     Dates: start: 20050523, end: 20050523
  2. NASACORT [Concomitant]

REACTIONS (1)
  - CONVULSION [None]
